FAERS Safety Report 6370721-2 (Version None)
Quarter: 2009Q3

REPORT INFORMATION
  Report Type: 
  Country: None (occurrence: None)
  Receive Date: 20090923
  Receipt Date: 20071112
  Transmission Date: 20100115
  Serious: Yes (Other)
  Sender: FDA-Public Use
  Company Number: US-ASTRAZENECA-2006UW25414

PATIENT
  Age: 45 Year
  Sex: Female
  Weight: 116.1 kg

DRUGS (16)
  1. SEROQUEL [Suspect]
     Indication: DEPRESSION
     Dosage: 500 MG EVERYDAY
     Route: 048
     Dates: start: 19960101, end: 20060601
  2. SEROQUEL [Suspect]
     Dosage: 25 MG TO 100 MG
     Route: 048
     Dates: start: 20041109
  3. ABILIFY [Concomitant]
     Dates: start: 20060601
  4. GEODON [Concomitant]
  5. RISPERDAL [Concomitant]
     Route: 048
     Dates: start: 20020201
  6. THORAZINE [Concomitant]
  7. PROZAC [Concomitant]
     Dosage: 40 MG TO 60 MG DAILY
     Route: 048
     Dates: start: 20010228
  8. PROPRANOLOL [Concomitant]
     Indication: VENTRICULAR EXTRASYSTOLES
     Route: 048
     Dates: start: 20010228
  9. SONATA [Concomitant]
     Dates: start: 20010228
  10. LORAZEPAM [Concomitant]
     Route: 048
     Dates: start: 20020201
  11. BUSPAR [Concomitant]
     Dosage: 15 MG TO 100 MG
     Route: 048
     Dates: start: 20020201
  12. TOPAMAX [Concomitant]
     Dosage: 100 MG TO 250 MG
     Route: 048
     Dates: start: 20020201
  13. AMITRIPTYLINE [Concomitant]
     Dosage: 25 MG TO 50 MG
     Dates: start: 20020201
  14. GABITRIL [Concomitant]
     Dosage: 4 MG OR 8 MG QHS
     Dates: start: 20020201
  15. PRILOSEC [Concomitant]
     Dates: start: 20020201
  16. LIPITOR [Concomitant]
     Dates: start: 20020201

REACTIONS (5)
  - DIABETES MELLITUS [None]
  - KETOACIDOSIS [None]
  - TARDIVE DYSKINESIA [None]
  - TYPE 1 DIABETES MELLITUS [None]
  - TYPE 2 DIABETES MELLITUS [None]
